FAERS Safety Report 15859398 (Version 1)
Quarter: 2019Q1

REPORT INFORMATION
  Report Type: Spontaneous
  Country: US (occurrence: US)
  Receive Date: 20190123
  Receipt Date: 20190123
  Transmission Date: 20190417
  Serious: Yes (Other)
  Sender: FDA-Public Use
  Company Number: None

PATIENT
  Age: 25 Year
  Sex: Female
  Weight: 58.5 kg

DRUGS (1)
  1. METHERGINE [Suspect]
     Active Substance: METHYLERGONOVINE MALEATE
     Indication: HAEMORRHAGE
     Route: 048

REACTIONS (5)
  - Mobility decreased [None]
  - Aphasia [None]
  - Feeling cold [None]
  - Presyncope [None]
  - Vasoconstriction [None]

NARRATIVE: CASE EVENT DATE: 20080620
